FAERS Safety Report 4549483-7 (Version None)
Quarter: 2005Q1

REPORT INFORMATION
  Report Type: 
  Country: None (occurrence: None)
  Receive Date: 20050110
  Receipt Date: 20050110
  Transmission Date: 20050727
  Serious: Yes (Other)
  Sender: FDA-Public Use
  Company Number: None

PATIENT
  Age: 45 Year
  Sex: Female
  Weight: 72.5755 kg

DRUGS (2)
  1. DITROPAN [Suspect]
     Indication: POLLAKIURIA
     Dosage: ONCE DAILY ORAL
     Route: 048
     Dates: start: 20040910, end: 20041002
  2. DITROPAN [Suspect]
     Indication: URINARY INCONTINENCE
     Dosage: ONCE DAILY ORAL
     Route: 048
     Dates: start: 20040910, end: 20041002

REACTIONS (4)
  - AMNESIA [None]
  - COGNITIVE DISORDER [None]
  - SENILE DEMENTIA [None]
  - THINKING ABNORMAL [None]
